FAERS Safety Report 6125504-5 (Version None)
Quarter: 2009Q1

REPORT INFORMATION
  Report Type: 
  Country: None (occurrence: None)
  Receive Date: 20090320
  Receipt Date: 20090316
  Transmission Date: 20090719
  Serious: Yes (Hospitalization)
  Sender: FDA-Public Use
  Company Number: US-WYE-H08612109

PATIENT
  Age: 6 Year
  Sex: Male
  Weight: 30.87 kg

DRUGS (1)
  1. ROBITUSSIN NIGHT TIME COUGH COLD AND FLU [Suspect]
     Indication: INFLUENZA
     Dosage: 1 TSP EVERY 1 DAY;  CUMULATIVE DOSE TO EVENT: 1 TSP
     Route: 048
     Dates: start: 20090302, end: 20090302

REACTIONS (3)
  - DRUG INEFFECTIVE [None]
  - OFF LABEL USE [None]
  - PRODUCT QUALITY ISSUE [None]
